FAERS Safety Report 23424857 (Version 1)
Quarter: 2024Q1

REPORT INFORMATION
  Report Type: Spontaneous
  Country: CN (occurrence: CN)
  Receive Date: 20240121
  Receipt Date: 20240121
  Transmission Date: 20240410
  Serious: Yes (Other)
  Sender: FDA-Public Use
  Company Number: CN-JNJFOC-20240132725

PATIENT

DRUGS (1)
  1. UPTRAVI [Suspect]
     Active Substance: SELEXIPAG
     Indication: Pulmonary arterial hypertension
     Route: 048

REACTIONS (28)
  - Pneumonia [Unknown]
  - Syncope [Unknown]
  - Pulmonary congestion [Unknown]
  - Cardiac arrest [Unknown]
  - Hypokalaemia [Unknown]
  - Intussusception [Unknown]
  - Spontaneous bacterial peritonitis [Unknown]
  - Diarrhoea [Unknown]
  - Headache [Unknown]
  - Nausea [Unknown]
  - Vomiting [Unknown]
  - Pyrexia [Unknown]
  - Dyspnoea [Unknown]
  - Fatigue [Unknown]
  - Abdominal pain upper [Unknown]
  - Hypotension [Unknown]
  - Pain in jaw [Unknown]
  - Flushing [Unknown]
  - Dizziness [Unknown]
  - Epistaxis [Unknown]
  - Rhinorrhoea [Unknown]
  - Malaise [Unknown]
  - Oxygen saturation decreased [Unknown]
  - Human metapneumovirus test positive [Unknown]
  - Dialysis hypotension [Unknown]
  - Liver function test increased [Unknown]
  - Creatinine renal clearance abnormal [Unknown]
  - Off label use [Unknown]
